FAERS Safety Report 6530720-4 (Version None)
Quarter: 2010Q1

REPORT INFORMATION
  Report Type: 
  Country: None (occurrence: None)
  Receive Date: 20100108
  Receipt Date: 20081215
  Transmission Date: 20100710
  Serious: No
  Sender: FDA-Public Use
  Company Number: A0760453A

PATIENT
  Sex: Female

DRUGS (3)
  1. OMACOR [Suspect]
     Indication: RHEUMATOID ARTHRITIS
     Dosage: 3CAP TWICE PER DAY
     Route: 048
  2. PREDNISONE [Concomitant]
  3. GLUCOPHAGE [Concomitant]

REACTIONS (1)
  - BLOOD OESTROGEN DECREASED [None]
